FAERS Safety Report 20485680 (Version 1)
Quarter: 2022Q1

REPORT INFORMATION
  Report Type: Spontaneous
  Country: BR (occurrence: BR)
  Receive Date: 20220217
  Receipt Date: 20220217
  Transmission Date: 20220423
  Serious: Yes (Hospitalization)
  Sender: FDA-Public Use
  Company Number: BR-COLLEGIUM PHARMACEUTICAL, INC.-2022CGM00125

PATIENT
  Age: 82 Year
  Sex: Male

DRUGS (3)
  1. TAPENTADOL [Suspect]
     Active Substance: TAPENTADOL
     Indication: Spinal cord injury
     Dosage: UNK
     Route: 048
  2. LISADOR DIP [Concomitant]
     Indication: Spinal cord injury
  3. UNSPECIFIED INGREDIENT [Concomitant]
     Active Substance: UNSPECIFIED INGREDIENT

REACTIONS (2)
  - Mental disorder [Recovered/Resolved]
  - Dementia [Recovered/Resolved]
